FAERS Safety Report 12860072 (Version 1)
Quarter: 2016Q4

REPORT INFORMATION
  Report Type: Spontaneous
  Country: DE (occurrence: DE)
  Receive Date: 20161019
  Receipt Date: 20161019
  Transmission Date: 20170207
  Serious: Yes (Other)
  Sender: FDA-Public Use
  Company Number: DE-ASTRAZENECA-2016SF08467

PATIENT
  Age: 78 Year
  Sex: Male
  Weight: 83 kg

DRUGS (4)
  1. BELOC ZOK [Suspect]
     Active Substance: METOPROLOL SUCCINATE
     Dosage: DOSE UNKNOWN, ONCE DAILY
     Route: 048
  2. BELOC ZOK [Suspect]
     Active Substance: METOPROLOL SUCCINATE
     Dosage: DOSE UNKNOWN, TWICE A DAY
     Route: 048
     Dates: start: 201509
  3. BELOC ZOK [Suspect]
     Active Substance: METOPROLOL SUCCINATE
     Dosage: DOSE UNKNOWN, 3.5 TO 4 TIMES A DAY
     Route: 048
  4. TORASEMID [Concomitant]
     Active Substance: TORSEMIDE
     Dosage: 5.0MG UNKNOWN

REACTIONS (2)
  - Sinus node dysfunction [Unknown]
  - Weight increased [Unknown]

NARRATIVE: CASE EVENT DATE: 2006
